FAERS Safety Report 4439434-8 (Version None)
Quarter: 2004Q3

REPORT INFORMATION
  Report Type: 
  Country: None (occurrence: None)
  Receive Date: 20040728
  Receipt Date: 20040312
  Transmission Date: 20050211
  Serious: No
  Sender: FDA-Public Use
  Company Number: USA040361929

PATIENT
  Age: 17 Year
  Sex: Female
  Weight: 55 kg

DRUGS (5)
  1. STRATTERA [Suspect]
     Indication: ANXIETY
     Dosage: 60 MG/1 DAY
     Dates: start: 20040131, end: 20040311
  2. STRATTERA [Suspect]
     Indication: ATTENTION DEFICIT/HYPERACTIVITY DISORDER
     Dosage: 60 MG/1 DAY
     Dates: start: 20040131, end: 20040311
  3. PROZAC [Suspect]
     Indication: ANXIETY
     Dosage: 15 MG/1 DAY
  4. PROZAC [Suspect]
     Indication: DEPRESSION
     Dosage: 15 MG/1 DAY
  5. BACLOFEN [Concomitant]

REACTIONS (7)
  - AGGRESSION [None]
  - DECREASED APPETITE [None]
  - FATIGUE [None]
  - HEADACHE [None]
  - MOOD SWINGS [None]
  - NAUSEA [None]
  - PAIN IN EXTREMITY [None]
